FAERS Safety Report 4992634-0 (Version None)
Quarter: 2006Q1

REPORT INFORMATION
  Report Type: 
  Country: None (occurrence: None)
  Receive Date: 20060314
  Receipt Date: 20051229
  Transmission Date: 20060701
  Serious: No
  Sender: FDA-Public Use
  Company Number: 2005-02668

PATIENT
  Age: 81 Year
  Sex: Male
  Weight: 63.5 kg

DRUGS (1)
  1. VELCADE (BORTEZPMIB) INJECTION [Suspect]
     Indication: MULTIPLE MYELOMA
     Dosage: INTRAVENOUS
     Route: 042
     Dates: start: 20050501, end: 20051101

REACTIONS (1)
  - NEUROPATHY PERIPHERAL [None]
